FAERS Safety Report 24109953 (Version 1)
Quarter: 2024Q3

REPORT INFORMATION
  Report Type: Spontaneous
  Country: US (occurrence: None)
  Receive Date: 20240717
  Receipt Date: 20240717
  Transmission Date: 20241016
  Serious: Yes (Other)
  Sender: Public
  Company Number: None

PATIENT
  Age: 60 Year
  Sex: Male

DRUGS (1)
  1. POMALYST [Suspect]
     Active Substance: POMALIDOMIDE
     Indication: Plasma cell leukaemia
     Dosage: FREQUENCY : DAILY;?
     Route: 048
     Dates: start: 20240605

REACTIONS (1)
  - Neutropenia [None]

NARRATIVE: CASE EVENT DATE: 20240716
